FAERS Safety Report 25328851 (Version 3)
Quarter: 2025Q2

REPORT INFORMATION
  Report Type: Spontaneous
  Country: IL (occurrence: IL)
  Receive Date: 20250519
  Receipt Date: 20250526
  Transmission Date: 20250716
  Serious: Yes (Hospitalization)
  Sender: ALEXION PHARMACEUTICALS
  Company Number: IL-AstraZeneca-CH-00870898AP

PATIENT
  Age: 65 Year

DRUGS (1)
  1. FASENRA [Suspect]
     Active Substance: BENRALIZUMAB
     Indication: Hypereosinophilic syndrome
     Dosage: 30 MILLIGRAM, Q4W

REACTIONS (5)
  - Device use issue [Recovering/Resolving]
  - Eosinophil count increased [Recovering/Resolving]
  - Diarrhoea [Recovering/Resolving]
  - Off label use [Unknown]
  - Drug specific antibody [Unknown]
